FAERS Safety Report 7712401-4 (Version None)
Quarter: 2011Q3

REPORT INFORMATION
  Report Type: 
  Country: None (occurrence: None)
  Receive Date: 20110826
  Receipt Date: 20110823
  Transmission Date: 20111222
  Serious: Yes (Death)
  Sender: FDA-Public Use
  Company Number: JP-ROCHE-798645

PATIENT
  Age: 56 Year
  Sex: Female

DRUGS (1)
  1. ROCEPHIN [Suspect]
     Route: 041
     Dates: start: 20090401, end: 20090501

REACTIONS (2)
  - SEPSIS [None]
  - TOXIC EPIDERMAL NECROLYSIS [None]
